FAERS Safety Report 10040608 (Version 2)
Quarter: 2014Q1

REPORT INFORMATION
  Report Type: Spontaneous
  Country: TR (occurrence: TR)
  Receive Date: 20140327
  Receipt Date: 20140331
  Transmission Date: 20141002
  Serious: Yes (Hospitalization, Other)
  Sender: FDA-Public Use
  Company Number: TR-009507513-1403TUR011931

PATIENT
  Age: 39 Year
  Sex: Female

DRUGS (1)
  1. ALENDRONATE SODIUM [Suspect]
     Indication: OSTEOPOROSIS
     Dosage: UNK
     Route: 048

REACTIONS (2)
  - Femoral neck fracture [Recovered/Resolved]
  - Fracture reduction [Recovered/Resolved]
